FAERS Safety Report 16908782 (Version 2)
Quarter: 2020Q3

REPORT INFORMATION
  Report Type: Spontaneous
  Country: US (occurrence: US)
  Receive Date: 20191011
  Receipt Date: 20200819
  Transmission Date: 20201102
  Serious: No
  Sender: FDA-Public Use
  Company Number: US-PFIZER INC-2018390861

PATIENT
  Age: 47 Year

DRUGS (2)
  1. LYRICA [Suspect]
     Active Substance: PREGABALIN
     Dosage: 1 DF, 1X/DAY
  2. LYRICA [Suspect]
     Active Substance: PREGABALIN
     Indication: MULTIPLE SCLEROSIS
     Dosage: 225 MG, 2X/DAY (1 CAPSULE 2 TIMES A DAY)
     Route: 048

REACTIONS (5)
  - Pain in extremity [Unknown]
  - Off label use [Unknown]
  - Product use in unapproved indication [Unknown]
  - Discomfort [Unknown]
  - Intentional product misuse [Unknown]
